FAERS Safety Report 7240418-5 (Version None)
Quarter: 2011Q1

REPORT INFORMATION
  Report Type: 
  Country: None (occurrence: None)
  Receive Date: 20110119
  Receipt Date: 20110119
  Transmission Date: 20110831
  Serious: No
  Sender: FDA-Public Use
  Company Number: None

PATIENT
  Sex: Female

DRUGS (1)
  1. CIMZIA [Suspect]
     Dosage: 200 MG/ML SC
     Route: 058
     Dates: start: 20101201

REACTIONS (1)
  - DRUG HYPERSENSITIVITY [None]
